FAERS Safety Report 9643552 (Version 2)
Quarter: 2013Q4

REPORT INFORMATION
  Report Type: Spontaneous
  Country: FR (occurrence: FR)
  Receive Date: 20131024
  Receipt Date: 20131028
  Transmission Date: 20140711
  Serious: Yes (Other)
  Sender: FDA-Public Use
  Company Number: FR-TEVA-439987ISR

PATIENT
  Age: 75 Year
  Sex: Female

DRUGS (5)
  1. AZILECT [Suspect]
     Dosage: 1 MILLIGRAM DAILY;
  2. SERTRALINE [Interacting]
     Indication: MAJOR DEPRESSION
     Dosage: 50 MILLIGRAM DAILY;
  3. SERTRALINE [Interacting]
     Dosage: 100 MILLIGRAM DAILY;
  4. LEVODOPA 200 MG/CARBIDOPA 50 MG/ENTACAPONE 200 MG [Suspect]
     Dosage: 1 DOSAGE FORM = LEVODOPA 200 MG + CARBIDOPA 50 MG + ENTACAPONE 200 MG
  5. AMANTADINE 100MG [Interacting]

REACTIONS (4)
  - Serotonin syndrome [Recovered/Resolved]
  - Renal failure [Recovered/Resolved]
  - Drug interaction [Recovered/Resolved]
  - Dehydration [Recovered/Resolved]
